FAERS Safety Report 11843567 (Version 1)
Quarter: 2015Q4

REPORT INFORMATION
  Report Type: Spontaneous
  Country: US (occurrence: US)
  Receive Date: 20151217
  Receipt Date: 20151217
  Transmission Date: 20160305
  Serious: No
  Sender: FDA-Public Use
  Company Number: US-HOSPIRA-2802677

PATIENT
  Age: 8 Year
  Sex: Male

DRUGS (1)
  1. METHOTREXATE [Suspect]
     Active Substance: METHOTREXATE
     Indication: CROHN^S DISEASE
     Dosage: NOT REPORTED
     Route: 058
     Dates: start: 201408

REACTIONS (3)
  - Skin exfoliation [Unknown]
  - Rash [Unknown]
  - Blister [Unknown]

NARRATIVE: CASE EVENT DATE: 201501
